FAERS Safety Report 17942266 (Version 4)
Quarter: 2020Q4

REPORT INFORMATION
  Report Type: Report from Study
  Country: BR (occurrence: BR)
  Receive Date: 20200624
  Receipt Date: 20201119
  Transmission Date: 20210113
  Serious: Yes (Other)
  Sender: FDA-Public Use
  Company Number: NVSC2020BR173719

PATIENT
  Sex: Female

DRUGS (1)
  1. FULVESTRANT. [Suspect]
     Active Substance: FULVESTRANT
     Indication: BREAST CANCER
     Dosage: UNK
     Route: 030
     Dates: start: 201907

REACTIONS (15)
  - Pain [Not Recovered/Not Resolved]
  - Discomfort [Not Recovered/Not Resolved]
  - Rib fracture [Recovered/Resolved]
  - Muscle mass [Not Recovered/Not Resolved]
  - Rib fracture [Not Recovered/Not Resolved]
  - Oedema [Not Recovered/Not Resolved]
  - Bone disorder [Not Recovered/Not Resolved]
  - Product physical issue [Not Recovered/Not Resolved]
  - Metastases to bone [Not Recovered/Not Resolved]
  - Dry mouth [Recovered/Resolved]
  - Oral contusion [Recovered/Resolved]
  - Spinal pain [Recovered/Resolved]
  - Arthralgia [Not Recovered/Not Resolved]
  - Eating disorder [Recovering/Resolving]
  - Pain in extremity [Not Recovered/Not Resolved]

NARRATIVE: CASE EVENT DATE: 2019
